FAERS Safety Report 4505075-7 (Version None)
Quarter: 2004Q4

REPORT INFORMATION
  Report Type: 
  Country: None (occurrence: None)
  Receive Date: 20041117
  Receipt Date: 20041117
  Transmission Date: 20050328
  Serious: Yes (Hospitalization)
  Sender: FDA-Public Use
  Company Number: None

PATIENT
  Age: 80 Year
  Sex: Male

DRUGS (13)
  1. AMITRIPTYLINE HCL [Suspect]
     Indication: DEPRESSION
     Dosage: 25 MG QHS
     Dates: start: 19961101
  2. TAMSULOSIN [Suspect]
     Indication: BENIGN PROSTATIC HYPERPLASIA
     Dosage: 0.4 MG QD
     Dates: start: 20040808
  3. FUROSEMIDE [Concomitant]
  4. OSCAL [Concomitant]
  5. ASPIRIN [Concomitant]
  6. METHADONE [Concomitant]
  7. FESO4 [Concomitant]
  8. FINASTERIDE [Concomitant]
  9. M.V.I. [Concomitant]
  10. PROMETHAZINE [Concomitant]
  11. OMEPRAZOLE [Concomitant]
  12. ALEDRONATE [Concomitant]
  13. SUCRALFATE [Concomitant]

REACTIONS (1)
  - ORTHOSTATIC HYPOTENSION [None]
